FAERS Safety Report 26034973 (Version 1)
Quarter: 2025Q4

REPORT INFORMATION
  Report Type: Spontaneous
  Country: US (occurrence: None)
  Receive Date: 20251112
  Receipt Date: 20251112
  Transmission Date: 20260118
  Serious: Yes (Hospitalization)
  Sender: FDA-CTU
  Company Number: None

PATIENT
  Sex: Female

DRUGS (2)
  1. ENBREL [Suspect]
     Active Substance: ETANERCEPT
     Indication: Rheumatoid arthritis
     Dosage: OTHER QUANTITY : 1 PEN UNDER THE SKIN;?FREQUENCY : WEEKLY;?FREQ: INJECT 1 PEN UNDER THE SKIN (SUBCUTANEOUS INJECTION) ONCE A WEEK?
     Route: 058
     Dates: start: 20210122
  2. ASPIRIN [Concomitant]
     Active Substance: ASPIRIN

REACTIONS (5)
  - Drug ineffective [None]
  - Fall [None]
  - Hip fracture [None]
  - Intentional dose omission [None]
  - Pain [None]
